FAERS Safety Report 4317463-2 (Version None)
Quarter: 2004Q1

REPORT INFORMATION
  Report Type: 
  Country: None (occurrence: None)
  Receive Date: 20040312
  Receipt Date: 20040305
  Transmission Date: 20041129
  Serious: Yes (Life-Threatening)
  Sender: FDA-Public Use
  Company Number: 7574

PATIENT
  Age: 70 Year
  Sex: Male

DRUGS (6)
  1. METHOTREXATE [Suspect]
     Indication: PSORIATIC ARTHROPATHY
     Dosage: MG WEEKLY, PO
     Route: 048
     Dates: start: 20031206
  2. CEFUROXIME [Suspect]
     Indication: BACTERIAL INFECTION
     Dosage: IV
     Route: 042
  3. DIPYRIDAMOLE [Concomitant]
  4. BICALUTAMIDE [Concomitant]
  5. CYCLOSPORINE [Concomitant]
  6. PREDNISONE [Concomitant]

REACTIONS (6)
  - ACUTE RESPIRATORY DISTRESS SYNDROME [None]
  - BACTERIAL INFECTION [None]
  - NEUTROPENIA [None]
  - RENAL FAILURE [None]
  - SEPSIS [None]
  - THROMBOCYTOPENIA [None]
